FAERS Safety Report 8236544-4 (Version None)
Quarter: 2012Q1

REPORT INFORMATION
  Report Type: 
  Country: None (occurrence: None)
  Receive Date: 20120327
  Receipt Date: 20120316
  Transmission Date: 20120608
  Serious: Yes (Other)
  Sender: FDA-Public Use
  Company Number: CN-BAYER-2012-025769

PATIENT
  Age: 31 Year
  Sex: Female

DRUGS (1)
  1. YASMIN [Suspect]
     Indication: CONTRACEPTION
     Dosage: 1 DF, ONCE
     Dates: start: 20110701

REACTIONS (1)
  - HYPERTRIGLYCERIDAEMIA [None]
